FAERS Safety Report 19266362 (Version 1)
Quarter: 2021Q2

REPORT INFORMATION
  Report Type: Spontaneous
  Country: US (occurrence: US)
  Receive Date: 20210518
  Receipt Date: 20210518
  Transmission Date: 20210717
  Serious: Yes (Other)
  Sender: FDA-Public Use
  Company Number: US-CELLTRION INC.-2021US006585

PATIENT

DRUGS (4)
  1. PREDNISONE. [Concomitant]
     Active Substance: PREDNISONE
     Dosage: WEANED OFF PREDNISONE
  2. PREDNISONE. [Concomitant]
     Active Substance: PREDNISONE
     Indication: JUVENILE IDIOPATHIC ARTHRITIS
     Dosage: 10 MG, DAILY
  3. METHOTREXATE. [Concomitant]
     Active Substance: METHOTREXATE
     Indication: JUVENILE IDIOPATHIC ARTHRITIS
     Dosage: 10 MG,  WEEKLY
  4. INFLIXIMAB (UNKNOWN) [Suspect]
     Active Substance: INFLIXIMAB
     Indication: JUVENILE IDIOPATHIC ARTHRITIS
     Dosage: 10 MG/KG EVERY 6 WEEKS

REACTIONS (9)
  - Meningitis coccidioides [Recovering/Resolving]
  - Chorioretinitis [Recovered/Resolved]
  - Arthritis [Unknown]
  - Fibromyalgia [Unknown]
  - Disseminated coccidioidomycosis [Recovering/Resolving]
  - Therapy interrupted [Unknown]
  - Retinal pigment epitheliopathy [Unknown]
  - Off label use [Unknown]
  - Condition aggravated [Unknown]
